FAERS Safety Report 9171621 (Version 2)
Quarter: 2013Q3

REPORT INFORMATION
  Report Type: Spontaneous
  Country: GB (occurrence: GB)
  Receive Date: 20130319
  Receipt Date: 20130816
  Transmission Date: 20140515
  Serious: Yes (Hospitalization)
  Sender: FDA-Public Use
  Company Number: GB-GLAXOSMITHKLINE-B0873351A

PATIENT
  Age: 44 Year
  Sex: Male

DRUGS (2)
  1. TROBALT [Suspect]
     Indication: EPILEPSY
     Dosage: 300MG TWICE PER DAY
     Route: 065
     Dates: start: 201208
  2. OTHER MEDICATIONS [Concomitant]

REACTIONS (1)
  - Diarrhoea [Not Recovered/Not Resolved]
